FAERS Safety Report 19223139 (Version 1)
Quarter: 2021Q2

REPORT INFORMATION
  Report Type: Spontaneous
  Country: US (occurrence: US)
  Receive Date: 20210505
  Receipt Date: 20210505
  Transmission Date: 20210717
  Serious: No
  Sender: FDA-Public Use
  Company Number: US-ROCHE-2714210

PATIENT
  Sex: Female

DRUGS (3)
  1. ESBRIET [Suspect]
     Active Substance: PIRFENIDONE
     Dosage: 2 TABS 3 TIMES DAILY X1 WEEKS
     Route: 048
  2. ESBRIET [Suspect]
     Active Substance: PIRFENIDONE
     Dosage: 3 TABS 3 TIMES DAILY WITH MEALS
     Route: 048
  3. ESBRIET [Suspect]
     Active Substance: PIRFENIDONE
     Indication: IDIOPATHIC PULMONARY FIBROSIS
     Dosage: TAKE 1 TABLET 3 TIMES DAILY X1 WEEKS, THEN 2 TABS 3 TABS 3 TIMES DAILY X1 WEEKS, THEN 3 TABS 3 TIMES
     Route: 048

REACTIONS (1)
  - Nausea [Not Recovered/Not Resolved]
